FAERS Safety Report 9636122 (Version 4)
Quarter: 2014Q2

REPORT INFORMATION
  Report Type: Report from Study
  Country: JP (occurrence: JP)
  Receive Date: 20131021
  Receipt Date: 20140627
  Transmission Date: 20141212
  Serious: Yes (Life-Threatening, Hospitalization)
  Sender: FDA-Public Use
  Company Number: JP-AMGEN-JPNCT2013073675

PATIENT
  Age: 85 Year
  Sex: Male
  Weight: 66 kg

DRUGS (15)
  1. DARBEPOETIN ALFA [Suspect]
     Indication: NEPHROGENIC ANAEMIA
     Dosage: 80 MUG, Q2WK
     Route: 058
     Dates: start: 20110614
  2. LASIX                              /00032601/ [Concomitant]
     Indication: NEPHROSCLEROSIS
     Dosage: UNK
     Route: 048
  3. NU-LOTAN [Concomitant]
     Dosage: UNK
     Route: 048
  4. JANUVIA [Concomitant]
     Indication: NEPHROSCLEROSIS
     Dosage: UNK
     Route: 048
  5. NORVASC [Concomitant]
     Dosage: UNK
     Route: 048
  6. KETOBUN A [Concomitant]
     Dosage: UNK
     Route: 048
  7. KAYEXALATE [Concomitant]
     Dosage: UNK
     Route: 048
  8. KREMEZIN [Concomitant]
     Indication: NEPHROSCLEROSIS
     Dosage: UNK
     Route: 048
  9. SORBITOL [Concomitant]
     Dosage: UNK
     Route: 048
  10. AMLODIPINE [Concomitant]
     Dosage: UNK
     Route: 048
  11. BAYASPIRIN [Concomitant]
     Dosage: UNK
     Route: 048
  12. ATORVASTATIN [Concomitant]
     Dosage: UNK
     Route: 048
  13. MYSLEE [Concomitant]
     Dosage: UNK
     Route: 048
  14. MS ONSHIPPU [Concomitant]
     Dosage: UNK
     Route: 061
  15. NATRIX [Concomitant]
     Indication: NEPHROSCLEROSIS
     Dosage: UNK
     Route: 048

REACTIONS (5)
  - Diverticulitis [Recovered/Resolved]
  - Pancreatic carcinoma [Not Recovered/Not Resolved]
  - Cardiac failure acute [Recovered/Resolved]
  - Melaena [Recovering/Resolving]
  - Xeroderma [Recovered/Resolved]
